FAERS Safety Report 5296444-9 (Version None)
Quarter: 2007Q2

REPORT INFORMATION
  Report Type: 
  Country: None (occurrence: None)
  Receive Date: 20070413
  Receipt Date: 20070410
  Transmission Date: 20071010
  Serious: Yes (Hospitalization)
  Sender: FDA-Public Use
  Company Number: ES-SANOFI-SYNTHELABO-A01200611218

PATIENT
  Age: 50 Year
  Sex: Female

DRUGS (1)
  1. ELOXATIN [Suspect]
     Indication: COLON CANCER STAGE IV
     Dosage: UNK
     Route: 042
     Dates: start: 20061201, end: 20061201

REACTIONS (6)
  - BRADYCARDIA [None]
  - HYPOTENSION [None]
  - OXYGEN SATURATION DECREASED [None]
  - RESPIRATORY ARREST [None]
  - STRIDOR [None]
  - SYNCOPE [None]
